FAERS Safety Report 6265915-0 (Version None)
Quarter: 2009Q3

REPORT INFORMATION
  Report Type: 
  Country: None (occurrence: None)
  Receive Date: 20090713
  Receipt Date: 20090701
  Transmission Date: 20100115
  Serious: Yes (Other)
  Sender: FDA-Public Use
  Company Number: PHHY2009MX25550

PATIENT
  Age: 90 Year
  Sex: Female

DRUGS (2)
  1. DIOVAN HCT [Suspect]
     Indication: HYPERTENSION
     Dosage: 2 DF (160/12.5 MG)/ DAY
     Route: 048
     Dates: start: 20061101, end: 20090623
  2. DIOVAN HCT [Suspect]
     Dosage: 1 DF (160/12.5 MG)/ DAY
     Route: 048
     Dates: start: 20090624

REACTIONS (2)
  - CARDIOMYOPATHY [None]
  - TACHYCARDIA [None]
